FAERS Safety Report 13416121 (Version 7)
Quarter: 2019Q1

REPORT INFORMATION
  Report Type: Spontaneous
  Country: GB (occurrence: GB)
  Receive Date: 20170406
  Receipt Date: 20190201
  Transmission Date: 20190417
  Serious: Yes (Death, Hospitalization, Other)
  Sender: FDA-Public Use
  Company Number: GB-JNJFOC-20170400580

PATIENT
  Age: 35 Year
  Sex: Female
  Weight: 141 kg

DRUGS (82)
  1. FENTANYL. [Suspect]
     Active Substance: FENTANYL
     Indication: PRODUCT USED FOR UNKNOWN INDICATION
     Route: 065
     Dates: start: 201409
  2. HYDROXYZINE [Suspect]
     Active Substance: HYDROXYZINE HYDROCHLORIDE
     Indication: PRODUCT USED FOR UNKNOWN INDICATION
     Route: 065
  3. LITHIUM CARBONATE. [Suspect]
     Active Substance: LITHIUM CARBONATE
     Indication: PRODUCT USED FOR UNKNOWN INDICATION
     Route: 065
     Dates: start: 20141002, end: 201410
  4. MIDAZOLAM [Suspect]
     Active Substance: MIDAZOLAM HYDROCHLORIDE
     Indication: PRODUCT USED FOR UNKNOWN INDICATION
     Route: 065
  5. CLOZAPINE. [Suspect]
     Active Substance: CLOZAPINE
     Indication: ANTISOCIAL PERSONALITY DISORDER
     Route: 065
     Dates: start: 20140908, end: 20140908
  6. CLOZAPINE. [Suspect]
     Active Substance: CLOZAPINE
     Indication: PSYCHOTIC DISORDER
     Route: 065
     Dates: start: 20140908, end: 20140908
  7. CLOZAPINE. [Suspect]
     Active Substance: CLOZAPINE
     Indication: BORDERLINE PERSONALITY DISORDER
     Route: 065
     Dates: start: 20140909, end: 20140909
  8. CLOZAPINE. [Suspect]
     Active Substance: CLOZAPINE
     Indication: ANTISOCIAL PERSONALITY DISORDER
     Route: 065
     Dates: start: 20140910, end: 20140911
  9. CLOZAPINE. [Suspect]
     Active Substance: CLOZAPINE
     Indication: ANTISOCIAL PERSONALITY DISORDER
     Dosage: 25 MG ONCE DAILY AND 50 MG ONCE DAILY, 2X/DAY (BID)
     Route: 065
     Dates: start: 20140912, end: 20140912
  10. CLOZAPINE. [Suspect]
     Active Substance: CLOZAPINE
     Indication: BORDERLINE PERSONALITY DISORDER
     Dosage: 50 MG ONCE DAILY AND 75 MG ONCE DAILY, 2X/DAY (BID)
     Route: 065
     Dates: start: 20140915, end: 20140915
  11. CLOZAPINE. [Suspect]
     Active Substance: CLOZAPINE
     Indication: ANTISOCIAL PERSONALITY DISORDER
     Dosage: 50 MG ONCE DAILY AND 75 MG ONCE DAILY, 2X/DAY (BID)
     Route: 065
     Dates: start: 20140915, end: 20140915
  12. CLOZAPINE. [Suspect]
     Active Substance: CLOZAPINE
     Indication: POST-TRAUMATIC STRESS DISORDER
     Dosage: 50 MG ONCE DAILY AND 75 MG ONCE DAILY, 2X/DAY (BID)
     Route: 065
     Dates: start: 20140915, end: 20140915
  13. CLOZAPINE. [Suspect]
     Active Substance: CLOZAPINE
     Indication: POST-TRAUMATIC STRESS DISORDER
     Route: 065
     Dates: start: 20140916, end: 20140916
  14. CLOZAPINE. [Suspect]
     Active Substance: CLOZAPINE
     Indication: PSYCHOTIC DISORDER
     Route: 065
     Dates: start: 20140916, end: 20140916
  15. CLOZAPINE. [Suspect]
     Active Substance: CLOZAPINE
     Indication: POST-TRAUMATIC STRESS DISORDER
     Dosage: 100 MG ONCE DAILY AND 225 MG ONCE DAILY, 2X/DAY (BID)
     Route: 065
     Dates: start: 20140922, end: 20140928
  16. CLOZAPINE. [Suspect]
     Active Substance: CLOZAPINE
     Indication: POST-TRAUMATIC STRESS DISORDER
     Route: 065
     Dates: start: 20140913, end: 20140913
  17. CETIRIZINE HYDROCHLORIDE. [Suspect]
     Active Substance: CETIRIZINE HYDROCHLORIDE
     Route: 065
  18. ATRACURIUM BESILATE [Suspect]
     Active Substance: ATRACURIUM BESYLATE
     Indication: PRODUCT USED FOR UNKNOWN INDICATION
     Route: 065
  19. CHLORPHENAMINE [Suspect]
     Active Substance: CHLORPHENIRAMINE MALEATE
     Indication: PRODUCT USED FOR UNKNOWN INDICATION
     Route: 065
  20. ZUCLOPENTHIXOL [Suspect]
     Active Substance: ZUCLOPENTHIXOL
     Indication: PRODUCT USED FOR UNKNOWN INDICATION
     Route: 065
  21. CLOZAPINE. [Suspect]
     Active Substance: CLOZAPINE
     Indication: BORDERLINE PERSONALITY DISORDER
     Route: 065
     Dates: start: 20140914, end: 20140914
  22. CLOZAPINE. [Suspect]
     Active Substance: CLOZAPINE
     Indication: POST-TRAUMATIC STRESS DISORDER
     Route: 065
     Dates: start: 20140914, end: 20140914
  23. CLOZAPINE. [Suspect]
     Active Substance: CLOZAPINE
     Indication: PSYCHOTIC DISORDER
     Dosage: 50 MG ONCE DAILY AND 75 MG ONCE DAILY, 2X/DAY (BID)
     Route: 065
     Dates: start: 20140915, end: 20140915
  24. CLOZAPINE. [Suspect]
     Active Substance: CLOZAPINE
     Indication: BORDERLINE PERSONALITY DISORDER
     Dosage: 75 MG ONCE DAILY AND 125 MG ONCE DAILY, 2X/DAY (BID)
     Route: 065
     Dates: start: 20140918, end: 20140918
  25. CLOZAPINE. [Suspect]
     Active Substance: CLOZAPINE
     Indication: BORDERLINE PERSONALITY DISORDER
     Dosage: 75 MG ONCE DAILY AND 150 MG ONCE DAILY, 2X/DAY
     Route: 065
     Dates: start: 20140919, end: 20140919
  26. CLOZAPINE. [Suspect]
     Active Substance: CLOZAPINE
     Indication: ANTISOCIAL PERSONALITY DISORDER
     Dosage: 75 MG ONCE DAILY AND 150 MG ONCE DAILY, 2X/DAY
     Route: 065
     Dates: start: 20140919, end: 20140919
  27. CLOZAPINE. [Suspect]
     Active Substance: CLOZAPINE
     Indication: PSYCHOTIC DISORDER
     Dosage: REDUCED DOSE AND PRESCRIBED 25 MG
     Route: 065
     Dates: start: 20140930, end: 20141002
  28. CLOZAPINE. [Suspect]
     Active Substance: CLOZAPINE
     Indication: ANTISOCIAL PERSONALITY DISORDER
     Route: 065
     Dates: start: 20140929, end: 20140930
  29. CLOZAPINE. [Suspect]
     Active Substance: CLOZAPINE
     Indication: POST-TRAUMATIC STRESS DISORDER
     Route: 065
     Dates: start: 20140929, end: 20140930
  30. CLOZAPINE. [Suspect]
     Active Substance: CLOZAPINE
     Indication: BORDERLINE PERSONALITY DISORDER
     Route: 065
     Dates: start: 20140908, end: 20140908
  31. CLOZAPINE. [Suspect]
     Active Substance: CLOZAPINE
     Indication: ANTISOCIAL PERSONALITY DISORDER
     Route: 065
     Dates: start: 20140909, end: 20140909
  32. CLOZAPINE. [Suspect]
     Active Substance: CLOZAPINE
     Indication: PSYCHOTIC DISORDER
     Route: 065
     Dates: start: 20140909, end: 20140909
  33. CLOZAPINE. [Suspect]
     Active Substance: CLOZAPINE
     Indication: ANTISOCIAL PERSONALITY DISORDER
     Route: 065
     Dates: start: 20140916, end: 20140916
  34. CLOZAPINE. [Suspect]
     Active Substance: CLOZAPINE
     Indication: ANTISOCIAL PERSONALITY DISORDER
     Dosage: 75 MG ONCE DAILY AND 100 MG ONCE DAILY, 2X/DAY (BID)
     Route: 065
     Dates: start: 20140917, end: 20140917
  35. CLOZAPINE. [Suspect]
     Active Substance: CLOZAPINE
     Indication: PSYCHOTIC DISORDER
     Dosage: 75 MG ONCE DAILY AND 150 MG ONCE DAILY, 2X/DAY
     Route: 065
     Dates: start: 20140919, end: 20140919
  36. CLOZAPINE. [Suspect]
     Active Substance: CLOZAPINE
     Indication: PSYCHOTIC DISORDER
     Dosage: 75 MG ONCE DAILY AND 175 MG ONCE DAILY, 2X/DAY
     Route: 065
     Dates: start: 20140920, end: 20140920
  37. CLOZAPINE. [Suspect]
     Active Substance: CLOZAPINE
     Indication: ANTISOCIAL PERSONALITY DISORDER
     Route: 065
     Dates: start: 20140921, end: 20140921
  38. CLOZAPINE. [Suspect]
     Active Substance: CLOZAPINE
     Indication: BORDERLINE PERSONALITY DISORDER
     Dosage: 100 MG ONCE DAILY AND 225 MG ONCE DAILY, 2X/DAY (BID)
     Route: 065
     Dates: start: 20140922, end: 20140928
  39. CLOZAPINE. [Suspect]
     Active Substance: CLOZAPINE
     Indication: ANTISOCIAL PERSONALITY DISORDER
     Dosage: 100 MG ONCE DAILY AND 250 MG ONCE DAILY, 2X/DAY (BID)
     Route: 065
     Dates: start: 20140929, end: 20140930
  40. CLOZAPINE. [Suspect]
     Active Substance: CLOZAPINE
     Indication: ANTISOCIAL PERSONALITY DISORDER
     Dosage: REDUCED DOSE AND PRESCRIBED 25 MG
     Route: 065
     Dates: start: 20140930, end: 20141002
  41. CLOZAPINE. [Suspect]
     Active Substance: CLOZAPINE
     Indication: BORDERLINE PERSONALITY DISORDER
     Route: 065
     Dates: start: 20140913, end: 20140913
  42. CLOZAPINE. [Suspect]
     Active Substance: CLOZAPINE
     Indication: PSYCHOTIC DISORDER
     Route: 065
     Dates: start: 20140913, end: 20140913
  43. CLOZAPINE. [Suspect]
     Active Substance: CLOZAPINE
     Indication: BORDERLINE PERSONALITY DISORDER
     Dosage: 75 MG ONCE DAILY AND 100 MG ONCE DAILY, 2X/DAY (BID)
     Route: 065
     Dates: start: 20140917, end: 20140917
  44. CLOZAPINE. [Suspect]
     Active Substance: CLOZAPINE
     Indication: POST-TRAUMATIC STRESS DISORDER
     Dosage: 75 MG ONCE DAILY AND 100 MG ONCE DAILY, 2X/DAY (BID)
     Route: 065
     Dates: start: 20140917, end: 20140917
  45. CLOZAPINE. [Suspect]
     Active Substance: CLOZAPINE
     Indication: POST-TRAUMATIC STRESS DISORDER
     Dosage: 75 MG ONCE DAILY AND 150 MG ONCE DAILY, 2X/DAY
     Route: 065
     Dates: start: 20140919, end: 20140919
  46. CLOZAPINE. [Suspect]
     Active Substance: CLOZAPINE
     Indication: BORDERLINE PERSONALITY DISORDER
     Route: 065
     Dates: start: 20140921, end: 20140921
  47. CLOZAPINE. [Suspect]
     Active Substance: CLOZAPINE
     Indication: ANTISOCIAL PERSONALITY DISORDER
     Dosage: 100 MG ONCE DAILY AND 225 MG ONCE DAILY, 2X/DAY (BID)
     Route: 065
     Dates: start: 20140922, end: 20140928
  48. CLOZAPINE. [Suspect]
     Active Substance: CLOZAPINE
     Indication: PSYCHOTIC DISORDER
     Dosage: 100 MG ONCE DAILY AND 250 MG ONCE DAILY, 2X/DAY (BID)
     Route: 065
     Dates: start: 20140929, end: 20140930
  49. CLOZAPINE. [Suspect]
     Active Substance: CLOZAPINE
     Indication: ANTISOCIAL PERSONALITY DISORDER
     Route: 065
     Dates: start: 20140911, end: 20140912
  50. CLOZAPINE. [Suspect]
     Active Substance: CLOZAPINE
     Indication: PSYCHOTIC DISORDER
     Route: 065
     Dates: start: 20140911, end: 20140912
  51. CLOZAPINE. [Suspect]
     Active Substance: CLOZAPINE
     Indication: BORDERLINE PERSONALITY DISORDER
     Route: 065
     Dates: start: 20140929, end: 20140930
  52. CLOZAPINE. [Suspect]
     Active Substance: CLOZAPINE
     Indication: PSYCHOTIC DISORDER
     Route: 065
     Dates: start: 20140929, end: 20140930
  53. CLOZAPINE. [Suspect]
     Active Substance: CLOZAPINE
     Indication: BORDERLINE PERSONALITY DISORDER
     Route: 065
     Dates: start: 20140910, end: 20140911
  54. CLOZAPINE. [Suspect]
     Active Substance: CLOZAPINE
     Indication: POST-TRAUMATIC STRESS DISORDER
     Route: 065
     Dates: start: 20140910, end: 20140911
  55. CLOZAPINE. [Suspect]
     Active Substance: CLOZAPINE
     Indication: BORDERLINE PERSONALITY DISORDER
     Route: 065
     Dates: start: 20140916, end: 20140916
  56. CLOZAPINE. [Suspect]
     Active Substance: CLOZAPINE
     Indication: PSYCHOTIC DISORDER
     Route: 065
     Dates: start: 20140921, end: 20140921
  57. CLOZAPINE. [Suspect]
     Active Substance: CLOZAPINE
     Indication: BORDERLINE PERSONALITY DISORDER
     Dosage: REDUCED DOSE AND PRESCRIBED 25 MG
     Route: 065
     Dates: start: 20140930, end: 20141002
  58. CLOZAPINE. [Suspect]
     Active Substance: CLOZAPINE
     Indication: BORDERLINE PERSONALITY DISORDER
     Route: 065
     Dates: start: 20140911, end: 20140912
  59. CLOZAPINE. [Suspect]
     Active Substance: CLOZAPINE
     Indication: ANTISOCIAL PERSONALITY DISORDER
     Route: 065
     Dates: start: 20140914, end: 20140914
  60. CLOZAPINE. [Suspect]
     Active Substance: CLOZAPINE
     Indication: PSYCHOTIC DISORDER
     Route: 065
     Dates: start: 20140914, end: 20140914
  61. CLOZAPINE. [Suspect]
     Active Substance: CLOZAPINE
     Indication: PSYCHOTIC DISORDER
     Dosage: 75 MG ONCE DAILY AND 100 MG ONCE DAILY, 2X/DAY (BID)
     Route: 065
     Dates: start: 20140917, end: 20140917
  62. CLOZAPINE. [Suspect]
     Active Substance: CLOZAPINE
     Indication: POST-TRAUMATIC STRESS DISORDER
     Dosage: 75 MG ONCE DAILY AND 125 MG ONCE DAILY, 2X/DAY (BID)
     Route: 065
     Dates: start: 20140918, end: 20140918
  63. CLOZAPINE. [Suspect]
     Active Substance: CLOZAPINE
     Indication: PSYCHOTIC DISORDER
     Dosage: 100 MG ONCE DAILY AND 225 MG ONCE DAILY, 2X/DAY (BID)
     Route: 065
     Dates: start: 20140922, end: 20140928
  64. CLOZAPINE. [Suspect]
     Active Substance: CLOZAPINE
     Indication: BORDERLINE PERSONALITY DISORDER
     Dosage: 100 MG ONCE DAILY AND 250 MG ONCE DAILY, 2X/DAY (BID)
     Route: 065
     Dates: start: 20140929, end: 20140930
  65. CLOZAPINE. [Suspect]
     Active Substance: CLOZAPINE
     Indication: POST-TRAUMATIC STRESS DISORDER
     Route: 065
     Dates: start: 20140911, end: 20140912
  66. TRIMETHOPRIM. [Suspect]
     Active Substance: TRIMETHOPRIM
     Indication: PRODUCT USED FOR UNKNOWN INDICATION
     Route: 065
  67. CLOZAPINE. [Suspect]
     Active Substance: CLOZAPINE
     Indication: POST-TRAUMATIC STRESS DISORDER
     Dosage: 25 MG ONCE DAILY AND 50 MG ONCE DAILY, 2X/DAY (BID)
     Route: 065
     Dates: start: 20140912, end: 20140912
  68. CLOZAPINE. [Suspect]
     Active Substance: CLOZAPINE
     Indication: PSYCHOTIC DISORDER
     Dosage: 25 MG ONCE DAILY AND 50 MG ONCE DAILY, 2X/DAY (BID)
     Route: 065
     Dates: start: 20140912, end: 20140912
  69. CLOZAPINE. [Suspect]
     Active Substance: CLOZAPINE
     Indication: ANTISOCIAL PERSONALITY DISORDER
     Dosage: 75 MG ONCE DAILY AND 125 MG ONCE DAILY, 2X/DAY (BID)
     Route: 065
     Dates: start: 20140918, end: 20140918
  70. CLOZAPINE. [Suspect]
     Active Substance: CLOZAPINE
     Indication: PSYCHOTIC DISORDER
     Dosage: 75 MG ONCE DAILY AND 125 MG ONCE DAILY, 2X/DAY (BID)
     Route: 065
     Dates: start: 20140918, end: 20140918
  71. CLOZAPINE. [Suspect]
     Active Substance: CLOZAPINE
     Indication: BORDERLINE PERSONALITY DISORDER
     Dosage: 75 MG ONCE DAILY AND 175 MG ONCE DAILY, 2X/DAY
     Route: 065
     Dates: start: 20140920, end: 20140920
  72. CLOZAPINE. [Suspect]
     Active Substance: CLOZAPINE
     Indication: ANTISOCIAL PERSONALITY DISORDER
     Dosage: 75 MG ONCE DAILY AND 175 MG ONCE DAILY, 2X/DAY
     Route: 065
     Dates: start: 20140920, end: 20140920
  73. CLOZAPINE. [Suspect]
     Active Substance: CLOZAPINE
     Indication: POST-TRAUMATIC STRESS DISORDER
     Dosage: 75 MG ONCE DAILY AND 175 MG ONCE DAILY, 2X/DAY
     Route: 065
     Dates: start: 20140920, end: 20140920
  74. CLOZAPINE. [Suspect]
     Active Substance: CLOZAPINE
     Indication: POST-TRAUMATIC STRESS DISORDER
     Dosage: REDUCED DOSE AND PRESCRIBED 25 MG
     Route: 065
     Dates: start: 20140930, end: 20141002
  75. CLOZAPINE. [Suspect]
     Active Substance: CLOZAPINE
     Indication: ANTISOCIAL PERSONALITY DISORDER
     Route: 065
     Dates: start: 20140913, end: 20140913
  76. CETIRIZINE HYDROCHLORIDE. [Suspect]
     Active Substance: CETIRIZINE HYDROCHLORIDE
     Indication: PRODUCT USED FOR UNKNOWN INDICATION
     Route: 065
  77. CLOZAPINE. [Suspect]
     Active Substance: CLOZAPINE
     Indication: POST-TRAUMATIC STRESS DISORDER
     Route: 065
     Dates: start: 20140908, end: 20140908
  78. CLOZAPINE. [Suspect]
     Active Substance: CLOZAPINE
     Indication: POST-TRAUMATIC STRESS DISORDER
     Route: 065
     Dates: start: 20140909, end: 20140909
  79. CLOZAPINE. [Suspect]
     Active Substance: CLOZAPINE
     Indication: PSYCHOTIC DISORDER
     Route: 065
     Dates: start: 20140910, end: 20140911
  80. CLOZAPINE. [Suspect]
     Active Substance: CLOZAPINE
     Indication: BORDERLINE PERSONALITY DISORDER
     Dosage: 25 MG ONCE DAILY AND 50 MG ONCE DAILY, 2X/DAY (BID)
     Route: 065
     Dates: start: 20140912, end: 20140912
  81. CLOZAPINE. [Suspect]
     Active Substance: CLOZAPINE
     Indication: POST-TRAUMATIC STRESS DISORDER
     Route: 065
     Dates: start: 20140921, end: 20140921
  82. CLOZAPINE. [Suspect]
     Active Substance: CLOZAPINE
     Indication: POST-TRAUMATIC STRESS DISORDER
     Dosage: 100 MG ONCE DAILY AND 250 MG ONCE DAILY, 2X/DAY (BID)
     Route: 065
     Dates: start: 20140929, end: 20140930

REACTIONS (22)
  - Refusal of treatment by patient [Unknown]
  - Subdural haemorrhage [Unknown]
  - Cardiac arrest [Unknown]
  - Constipation [Unknown]
  - Neutropenic sepsis [Fatal]
  - Personality disorder [Fatal]
  - Blood urea increased [Unknown]
  - Infection [Unknown]
  - Acute respiratory distress syndrome [Fatal]
  - Malaise [Unknown]
  - Inflammation [Unknown]
  - Bone marrow failure [Fatal]
  - Myelodysplastic syndrome [Fatal]
  - Dizziness [Unknown]
  - Multiple organ dysfunction syndrome [Fatal]
  - Pneumocystis jirovecii pneumonia [Fatal]
  - Macrocytosis [Fatal]
  - Subarachnoid haemorrhage [Unknown]
  - Tonsillar hypertrophy [Unknown]
  - Agitation [Unknown]
  - Product use in unapproved indication [Unknown]
  - Oropharyngeal pain [Unknown]

NARRATIVE: CASE EVENT DATE: 2014
